FAERS Safety Report 4500650-8 (Version None)
Quarter: 2004Q4

REPORT INFORMATION
  Report Type: 
  Country: None (occurrence: None)
  Receive Date: 20041115
  Receipt Date: 20041104
  Transmission Date: 20050328
  Serious: Yes (Other)
  Sender: FDA-Public Use
  Company Number: FR-JNJFOC-20040603091

PATIENT
  Sex: Female

DRUGS (3)
  1. RISPERDAL [Suspect]
     Route: 049
  2. ARICEPT [Concomitant]
  3. STILNOX [Concomitant]

REACTIONS (2)
  - MUSCLE RIGIDITY [None]
  - TARDIVE DYSKINESIA [None]
